FAERS Safety Report 7023431-2 (Version None)
Quarter: 2010Q3

REPORT INFORMATION
  Report Type: 
  Country: None (occurrence: None)
  Receive Date: 20100930
  Receipt Date: 20100917
  Transmission Date: 20110219
  Serious: Yes (Death)
  Sender: FDA-Public Use
  Company Number: CA-WATSON-2010-12839

PATIENT
  Age: 5 Year
  Sex: Female

DRUGS (3)
  1. CLARITHROMYCIN [Suspect]
     Indication: EAR INFECTION
     Dosage: UNK
  2. HYDROCODONE [Suspect]
     Indication: NASOPHARYNGITIS
     Dosage: 1 TEASPOON OF 1MG/ML, TID
  3. VALPROIC ACID [Suspect]
     Indication: CONVULSION
     Dosage: 250 MG, DAILY

REACTIONS (2)
  - DRUG INTERACTION [None]
  - DRUG TOXICITY [None]
